FAERS Safety Report 6753362-4 (Version None)
Quarter: 2010Q2

REPORT INFORMATION
  Report Type: 
  Country: None (occurrence: None)
  Receive Date: 20100520
  Receipt Date: 20091109
  Transmission Date: 20101027
  Serious: Yes (Other)
  Sender: FDA-Public Use
  Company Number: 2009296074

PATIENT
  Age: 60 Year
  Sex: Female
  Weight: 69 kg

DRUGS (3)
  1. PROVERA [Suspect]
     Indication: HORMONE REPLACEMENT THERAPY
     Dosage: ORAL
     Route: 048
     Dates: start: 19860201, end: 19890401
  2. PREMPRO [Suspect]
     Indication: HORMONE REPLACEMENT THERAPY
     Dates: start: 19860201, end: 19890401
  3. ESTROGENS SOL/INJ [Suspect]
     Indication: HORMONE REPLACEMENT THERAPY
     Dates: start: 19890101, end: 19990101

REACTIONS (2)
  - MYOCARDIAL INFARCTION [None]
  - OVARIAN CANCER [None]
